FAERS Safety Report 4535631-1 (Version None)
Quarter: 2004Q4

REPORT INFORMATION
  Report Type: 
  Country: None (occurrence: None)
  Receive Date: 20041222
  Receipt Date: 20041222
  Transmission Date: 20050328
  Serious: No
  Sender: FDA-Public Use
  Company Number: None

PATIENT
  Sex: Male
  Weight: 72.5755 kg

DRUGS (2)
  1. MINOCYCLINE 100 MG [Suspect]
     Indication: ACNE
     Dates: start: 20041001, end: 20041201
  2. EFFEXOR [Suspect]
     Indication: DEPRESSION

REACTIONS (6)
  - COGNITIVE DISORDER [None]
  - DIZZINESS [None]
  - FATIGUE [None]
  - HEARING IMPAIRED [None]
  - INCOHERENT [None]
  - NO REACTION ON PREVIOUS EXPOSURE TO DRUG [None]
